FAERS Safety Report 20586459 (Version 2)
Quarter: 2022Q2

REPORT INFORMATION
  Report Type: Spontaneous
  Country: US (occurrence: US)
  Receive Date: 20220313
  Receipt Date: 20220418
  Transmission Date: 20220721
  Serious: No
  Sender: FDA-Public Use
  Company Number: US-BIOGEN-2022BI01104080

PATIENT
  Age: 63 Year
  Sex: Female

DRUGS (1)
  1. TECFIDERA [Suspect]
     Active Substance: DIMETHYL FUMARATE
     Indication: Product used for unknown indication
     Dosage: MAINTENANCE DOSE
     Route: 048
     Dates: start: 202001

REACTIONS (4)
  - Back pain [Not Recovered/Not Resolved]
  - Arthralgia [Not Recovered/Not Resolved]
  - Pain in extremity [Unknown]
  - Asthenia [Unknown]

NARRATIVE: CASE EVENT DATE: 20220214
